FAERS Safety Report 23409241 (Version 2)
Quarter: 2024Q1

REPORT INFORMATION
  Report Type: Spontaneous
  Country: JP (occurrence: JP)
  Receive Date: 20240117
  Receipt Date: 20240223
  Transmission Date: 20240409
  Serious: No
  Sender: FDA-Public Use
  Company Number: JP-PFIZER INC-PV202300206438

PATIENT

DRUGS (1)
  1. NGENLA [Suspect]
     Active Substance: SOMATROGON-GHLA
     Dosage: UNK UNK, WEEKLY (EVERY MONDAY)
     Route: 058
     Dates: start: 2023

REACTIONS (3)
  - Malaise [Unknown]
  - Illness [Unknown]
  - Injection site pain [Unknown]
